FAERS Safety Report 8168784-7 (Version None)
Quarter: 2012Q1

REPORT INFORMATION
  Report Type: 
  Country: None (occurrence: None)
  Receive Date: 20120227
  Receipt Date: 20120215
  Transmission Date: 20120608
  Serious: Yes (Hospitalization, Other)
  Sender: FDA-Public Use
  Company Number: US-ELI_LILLY_AND_COMPANY-US201008003854

PATIENT
  Sex: Female

DRUGS (14)
  1. PREMPRO [Concomitant]
  2. ATENOLOL [Concomitant]
     Dosage: 50 MG, UNK
  3. CYCLOBENZAPRINE [Concomitant]
     Dosage: 10 MG, UNK
  4. LASIX [Concomitant]
     Dosage: 40 MG, DAILY (1/D)
  5. ASPIRIN [Concomitant]
     Dosage: 325 MG, DAILY (1/D)
  6. FORTEO [Suspect]
     Dosage: 20 UG, DAILY (1/D)
     Route: 058
     Dates: end: 20111101
  7. SYNTHROID [Concomitant]
     Dosage: 0.112 MG, UNK
  8. ELAVIL [Concomitant]
  9. LIPITOR [Concomitant]
     Dosage: 10 MG, DAILY (1/D)
  10. FORTEO [Suspect]
     Indication: OSTEOPOROSIS
     Dosage: 20 UG, DAILY (1/D)
     Route: 058
     Dates: start: 20100308
  11. PROTONIX [Concomitant]
     Dosage: 40 MG, UNK
  12. DILAUDID [Concomitant]
     Dosage: 2 MG, AS NEEDED
  13. BACLOFEN [Concomitant]
  14. ZANTAC [Concomitant]
     Dosage: 300 MG, UNK

REACTIONS (9)
  - MYOCARDIAL INFARCTION [None]
  - MUSCLE SPASMS [None]
  - CARDIAC ENZYMES INCREASED [None]
  - CATHETERISATION CARDIAC [None]
  - MUSCULAR WEAKNESS [None]
  - LOSS OF CONSCIOUSNESS [None]
  - HOSPITALISATION [None]
  - DRUG DOSE OMISSION [None]
  - MOVEMENT DISORDER [None]
